FAERS Safety Report 9868373 (Version 3)
Quarter: 2017Q2

REPORT INFORMATION
  Report Type: Report from Study
  Country: US (occurrence: US)
  Receive Date: 20140204
  Receipt Date: 20170509
  Transmission Date: 20170830
  Serious: Yes (Death, Other)
  Sender: FDA-Public Use
  Company Number: US-SANOFI-AVENTIS-2013SA012605

PATIENT
  Age: 60 Year
  Sex: Female

DRUGS (2)
  1. AUBAGIO [Suspect]
     Active Substance: TERIFLUNOMIDE
     Indication: MULTIPLE SCLEROSIS
     Route: 048
     Dates: start: 20130124
  2. AUBAGIO [Suspect]
     Active Substance: TERIFLUNOMIDE
     Indication: MULTIPLE SCLEROSIS
     Route: 048
     Dates: start: 20160823, end: 20170405

REACTIONS (5)
  - Foot fracture [Unknown]
  - Alopecia [Not Recovered/Not Resolved]
  - Dizziness [Recovered/Resolved]
  - Death [Fatal]
  - Arthropathy [Recovered/Resolved]

NARRATIVE: CASE EVENT DATE: 20130124
